FAERS Safety Report 11273150 (Version 1)
Quarter: 2015Q3

REPORT INFORMATION
  Report Type: Spontaneous
  Country: US (occurrence: US)
  Receive Date: 20150715
  Receipt Date: 20150715
  Transmission Date: 20151125
  Serious: Yes (Other)
  Sender: FDA-Public Use
  Company Number: US-TAKEDA-2015TJP000394

PATIENT
  Age: 82 Year
  Sex: Female

DRUGS (66)
  1. IBUPROFEN. [Suspect]
     Active Substance: IBUPROFEN
     Indication: PRODUCT USED FOR UNKNOWN INDICATION
     Dosage: UNK
     Route: 065
  2. MORPHINE SULFATE. [Suspect]
     Active Substance: MORPHINE SULFATE
     Indication: PRODUCT USED FOR UNKNOWN INDICATION
     Dosage: UNK
     Route: 065
  3. GLIBENCLAMIDE [Suspect]
     Active Substance: GLYBURIDE
     Indication: PRODUCT USED FOR UNKNOWN INDICATION
     Dosage: UNK
     Route: 065
  4. VITAMIN B 1-6-12 [Suspect]
     Active Substance: CYANOCOBALAMIN\PYRIDOXINE\THIAMINE
     Indication: GENERAL PHYSICAL HEALTH DETERIORATION
     Dosage: 2000 MG, QD
     Route: 065
     Dates: start: 2002
  5. ZINC [Concomitant]
     Active Substance: ZINC\ZINC CHLORIDE
     Dosage: UNK
     Dates: start: 2009
  6. CELECOXIB. [Suspect]
     Active Substance: CELECOXIB
     Indication: PRODUCT USED FOR UNKNOWN INDICATION
     Dosage: UNK
     Route: 048
  7. NIFEDIPINE. [Suspect]
     Active Substance: NIFEDIPINE
     Indication: PRODUCT USED FOR UNKNOWN INDICATION
     Dosage: UNK
     Route: 065
  8. PREVACID [Suspect]
     Active Substance: LANSOPRAZOLE
     Indication: PRODUCT USED FOR UNKNOWN INDICATION
     Dosage: UNK
     Route: 065
  9. LISINOPRIL. [Suspect]
     Active Substance: LISINOPRIL
     Indication: BLOOD PRESSURE ABNORMAL
     Dosage: UNK
     Route: 048
  10. BENADRYL [Suspect]
     Active Substance: DIPHENHYDRAMINE HYDROCHLORIDE
     Indication: PRODUCT USED FOR UNKNOWN INDICATION
     Dosage: UNK
     Route: 065
  11. QUERCETIN [Concomitant]
     Active Substance: QUERCETIN
     Dosage: UNK
     Dates: start: 2009
  12. BERBERINE [Concomitant]
     Active Substance: BERBERINE
     Dosage: UNK
  13. FISH OIL [Concomitant]
     Active Substance: FISH OIL
     Dosage: UNK
     Dates: start: 2014
  14. BIOTIN [Concomitant]
     Active Substance: BIOTIN
     Dosage: UNK
     Dates: start: 2012
  15. METFORMIN [Suspect]
     Active Substance: METFORMIN HYDROCHLORIDE
     Indication: PRODUCT USED FOR UNKNOWN INDICATION
     Dosage: UNK
     Route: 065
  16. NEXIUM [Suspect]
     Active Substance: ESOMEPRAZOLE MAGNESIUM
     Indication: HIATUS HERNIA
     Dosage: 40 MG, QD
     Route: 048
     Dates: start: 2004, end: 20141205
  17. NAC [Concomitant]
     Dosage: UNK
     Dates: start: 2009
  18. CHROMIUM [Concomitant]
     Active Substance: CHROMIC CHLORIDE\CHROMIUM
     Dosage: UNK
  19. VITAMIN C [Concomitant]
     Active Substance: ASCORBIC ACID
     Dosage: UNK
     Dates: start: 2002
  20. VITAMIN D3 [Concomitant]
     Active Substance: CHOLECALCIFEROL
     Dosage: UNK
     Dates: start: 2002
  21. MAGNESIUM [Concomitant]
     Active Substance: MAGNESIUM
     Dosage: UNK
     Dates: start: 1998
  22. PROBIOTIC [Concomitant]
     Active Substance: PROBIOTICS NOS
     Dosage: UNK
     Dates: start: 1999
  23. OMEPRAZOLE. [Suspect]
     Active Substance: OMEPRAZOLE
     Indication: GASTRIC DISORDER
     Dosage: UNK
     Route: 048
     Dates: start: 2002
  24. RANITIDINE [Suspect]
     Active Substance: RANITIDINE\RANITIDINE HYDROCHLORIDE
     Indication: PRODUCT USED FOR UNKNOWN INDICATION
     Dosage: UNK
     Route: 065
  25. NEXIUM 24HR [Suspect]
     Active Substance: ESOMEPRAZOLE MAGNESIUM
     Indication: HIATUS HERNIA
     Dosage: 40 MG, UNK
     Route: 048
     Dates: start: 20141205
  26. PERCOCET [Suspect]
     Active Substance: ACETAMINOPHEN\OXYCODONE HYDROCHLORIDE
     Indication: PRODUCT USED FOR UNKNOWN INDICATION
     Dosage: UNK
     Route: 065
  27. CARNOSINE [Concomitant]
     Active Substance: CARNOSINE
     Dosage: UNK
     Dates: start: 2012
  28. PANTETHINE [Concomitant]
     Active Substance: PANTETHINE
     Dosage: UNK
     Dates: start: 2009
  29. EXCEDRIN [Concomitant]
     Active Substance: ACETAMINOPHEN\ASPIRIN\CAFFEINE
     Dosage: UNK
  30. ACETAMINOPHEN. [Concomitant]
     Active Substance: ACETAMINOPHEN
     Dosage: UNK
  31. TUMS [Concomitant]
     Active Substance: CALCIUM CARBONATE
     Dosage: UNK
     Dates: start: 2014
  32. HYDROCHLOROTHIAZIDE. [Concomitant]
     Active Substance: HYDROCHLOROTHIAZIDE
     Dosage: UNK
  33. INSULIN [Concomitant]
     Active Substance: INSULIN NOS
     Dosage: UNK
  34. FLAXSEED [Concomitant]
     Active Substance: FLAX SEED
     Dosage: UNK
  35. BLADDER WRACK [Concomitant]
     Dosage: UNK
     Dates: start: 2009
  36. FAMOTIDINE. [Suspect]
     Active Substance: FAMOTIDINE
     Indication: PRODUCT USED FOR UNKNOWN INDICATION
     Dosage: UNK
     Route: 065
  37. CODEINE [Suspect]
     Active Substance: CODEINE
     Indication: PRODUCT USED FOR UNKNOWN INDICATION
     Dosage: UNK
     Route: 065
  38. ESTROGENS CONJUGATED [Suspect]
     Active Substance: ESTROGENS, CONJUGATED
     Indication: PRODUCT USED FOR UNKNOWN INDICATION
     Dosage: UNK
     Route: 065
  39. METHYLSULFONYLMETHANE [Suspect]
     Active Substance: DIMETHYL SULFONE
     Indication: PRODUCT USED FOR UNKNOWN INDICATION
     Dosage: UNK
     Route: 065
  40. VITAMIN B COMPLEX                  /00003501/ [Concomitant]
     Dosage: UNK
     Route: 048
     Dates: start: 2002
  41. LANTUS [Suspect]
     Active Substance: INSULIN GLARGINE
     Indication: PRODUCT USED FOR UNKNOWN INDICATION
     Dosage: UNK
     Route: 065
  42. A FORM OF ESTROGEN [Suspect]
     Active Substance: UNSPECIFIED INGREDIENT
     Indication: PRODUCT USED FOR UNKNOWN INDICATION
     Dosage: UNK
     Route: 065
  43. ACIPHEX [Suspect]
     Active Substance: RABEPRAZOLE SODIUM
     Indication: PRODUCT USED FOR UNKNOWN INDICATION
     Dosage: UNK
     Route: 065
  44. BROMELAIN [Concomitant]
     Active Substance: BROMELAINS
     Dosage: UNK
     Dates: start: 2012
  45. LUTEIN [Concomitant]
     Active Substance: LUTEIN
     Dosage: UNK
     Dates: start: 2014
  46. VITAMIN B1 [Concomitant]
     Active Substance: THIAMINE HYDROCHLORIDE
     Dosage: UNK
     Dates: start: 2004
  47. VITAMIN K [Concomitant]
     Active Substance: PHYTONADIONE
     Dosage: UNK
     Dates: start: 2002
  48. TURMERIC [Concomitant]
     Active Substance: TURMERIC
     Dosage: UNK
     Dates: start: 2009
  49. UBIQUINOL [Concomitant]
     Dosage: UNK
     Dates: start: 2009
  50. GINGER ROOT [Concomitant]
     Dosage: UNK
     Dates: start: 2012
  51. TURMIC [Concomitant]
     Dosage: UNK
     Dates: start: 2009
  52. DGL [Concomitant]
     Dosage: UNK
     Route: 048
     Dates: start: 2010
  53. LOSARTAN. [Suspect]
     Active Substance: LOSARTAN
     Indication: PRODUCT USED FOR UNKNOWN INDICATION
     Dosage: UNK
     Route: 065
  54. NEXIUM [Suspect]
     Active Substance: ESOMEPRAZOLE MAGNESIUM
     Indication: GASTROOESOPHAGEAL REFLUX DISEASE
     Dosage: 20 MG, BID
     Route: 048
  55. NEXIUM 24HR [Suspect]
     Active Substance: ESOMEPRAZOLE MAGNESIUM
     Indication: GASTROOESOPHAGEAL REFLUX DISEASE
     Dosage: 2 DF, BID
     Route: 048
  56. HUMALOG [Suspect]
     Active Substance: INSULIN LISPRO
     Indication: PRODUCT USED FOR UNKNOWN INDICATION
     Dosage: UNK
     Route: 065
  57. LEVAQUIN [Suspect]
     Active Substance: LEVOFLOXACIN
     Indication: PRODUCT USED FOR UNKNOWN INDICATION
     Dosage: UNK
     Route: 065
  58. CITRAFEN [Suspect]
     Active Substance: TIQUIZIUM BROMIDE
     Indication: PRODUCT USED FOR UNKNOWN INDICATION
     Dosage: UNK
     Route: 065
  59. LYSINE [Concomitant]
     Active Substance: LYSINE
     Dosage: UNK
     Dates: start: 2002
  60. ZELNORM [Suspect]
     Active Substance: TEGASEROD MALEATE
     Indication: PRODUCT USED FOR UNKNOWN INDICATION
     Dosage: UNK
     Route: 065
  61. FLAXSEED [Concomitant]
     Active Substance: FLAX SEED
     Dosage: UNK
  62. PERLUXAN (HOPS) [Concomitant]
     Dosage: UNK
     Dates: start: 2009
  63. POTASSIUM [Concomitant]
     Active Substance: POTASSIUM
     Dosage: UNK
     Dates: start: 2002
  64. NOVOLIN N [Concomitant]
     Active Substance: INSULIN HUMAN
     Dosage: UNK
  65. GREEN COFFEE [Concomitant]
     Dosage: UNK
  66. LUTEIN ZEAXANTHIN [Concomitant]
     Dosage: UNK
     Dates: start: 2014

REACTIONS (18)
  - Blood zinc decreased [Unknown]
  - Fatigue [Unknown]
  - Femur fracture [Unknown]
  - Condition aggravated [Unknown]
  - Rash macular [Unknown]
  - Drug ineffective [Unknown]
  - Intentional product misuse [Unknown]
  - Drug hypersensitivity [Unknown]
  - Sleep disorder due to a general medical condition [Unknown]
  - Micturition urgency [Unknown]
  - Barrett^s oesophagus [Unknown]
  - Bladder disorder [Unknown]
  - Diabetes mellitus [Unknown]
  - Blood magnesium decreased [Unknown]
  - Arthritis [Unknown]
  - Cystitis [Unknown]
  - Product physical issue [Unknown]
  - Abdominal discomfort [Recovered/Resolved]

NARRATIVE: CASE EVENT DATE: 2004
